FAERS Safety Report 19783608 (Version 4)
Quarter: 2022Q2

REPORT INFORMATION
  Report Type: Report from Study
  Country: US (occurrence: US)
  Receive Date: 20210902
  Receipt Date: 20220411
  Transmission Date: 20220721
  Serious: Yes (Other)
  Sender: FDA-Public Use
  Company Number: US-ABBVIE-21K-163-4063378-00

PATIENT
  Sex: Female
  Weight: 67.646 kg

DRUGS (12)
  1. RINVOQ [Suspect]
     Active Substance: UPADACITINIB
     Indication: Rheumatoid arthritis
     Route: 048
     Dates: start: 20210416, end: 20210624
  2. RINVOQ [Suspect]
     Active Substance: UPADACITINIB
     Route: 048
     Dates: start: 20210701
  3. RINVOQ [Suspect]
     Active Substance: UPADACITINIB
     Route: 048
  4. HYDROCODONE [Suspect]
     Active Substance: HYDROCODONE
     Indication: Pain
     Route: 065
     Dates: start: 20210827, end: 20210828
  5. DICLOFENAC SODIUM [Concomitant]
     Active Substance: DICLOFENAC SODIUM
     Indication: Arthralgia
  6. METHOTREXATE SODIUM [Concomitant]
     Active Substance: METHOTREXATE SODIUM
     Indication: Rheumatoid arthritis
  7. OMEPRAZOLE [Concomitant]
     Active Substance: OMEPRAZOLE
     Indication: Gastric disorder
  8. LEVOTHYROXINE SODIUM [Concomitant]
     Active Substance: LEVOTHYROXINE SODIUM
     Indication: Thyroid disorder
  9. VENLAFAXINE [Concomitant]
     Active Substance: VENLAFAXINE HYDROCHLORIDE
     Indication: Anxiety
  10. MODERNA COVID-19 VACCINE [Concomitant]
     Active Substance: ELASOMERAN
     Indication: COVID-19 immunisation
     Dosage: MODERNA
     Route: 030
     Dates: start: 20210415, end: 20210415
  11. MODERNA COVID-19 VACCINE [Concomitant]
     Active Substance: ELASOMERAN
     Dosage: MODERNA
     Route: 030
     Dates: start: 20210513, end: 20210513
  12. MODERNA COVID-19 VACCINE [Concomitant]
     Active Substance: ELASOMERAN
     Dosage: 3RD DOSE
     Route: 030
     Dates: start: 202111, end: 202111

REACTIONS (15)
  - Pelvic fracture [Recovering/Resolving]
  - Foot fracture [Recovering/Resolving]
  - Fracture pain [Recovering/Resolving]
  - Skin infection [Recovered/Resolved]
  - Vomiting [Recovered/Resolved]
  - Back disorder [Recovering/Resolving]
  - Myositis [Recovering/Resolving]
  - COVID-19 [Recovering/Resolving]
  - Throat irritation [Unknown]
  - Ear infection [Recovering/Resolving]
  - Tooth loss [Recovering/Resolving]
  - Headache [Unknown]
  - Road traffic accident [Unknown]
  - Nausea [Recovered/Resolved]
  - Tooth discolouration [Unknown]

NARRATIVE: CASE EVENT DATE: 20210101
